FAERS Safety Report 5603236-7 (Version None)
Quarter: 2008Q1

REPORT INFORMATION
  Report Type: 
  Country: None (occurrence: None)
  Receive Date: 20080125
  Receipt Date: 20080114
  Transmission Date: 20080703
  Serious: Yes (Hospitalization, Other)
  Sender: FDA-Public Use
  Company Number: US-PFIZER INC-2008004929

PATIENT
  Sex: Male
  Weight: 59.09 kg

DRUGS (1)
  1. CHANTIX [Suspect]
     Indication: SMOKING CESSATION THERAPY
     Route: 048
     Dates: start: 20070801, end: 20071001

REACTIONS (3)
  - HERNIA REPAIR [None]
  - NAUSEA [None]
  - STOMACH DISCOMFORT [None]
